FAERS Safety Report 8107616-X (Version None)
Quarter: 2012Q1

REPORT INFORMATION
  Report Type: 
  Country: None (occurrence: None)
  Receive Date: 20120202
  Receipt Date: 20120130
  Transmission Date: 20120608
  Serious: Yes (Other)
  Sender: FDA-Public Use
  Company Number: US-PFIZER INC-2012026377

PATIENT
  Sex: Male

DRUGS (1)
  1. CHANTIX [Suspect]
     Dosage: UNK
     Dates: start: 20120114, end: 20120126

REACTIONS (4)
  - NAUSEA [None]
  - AGGRESSION [None]
  - ABNORMAL DREAMS [None]
  - PERSONALITY CHANGE [None]
